FAERS Safety Report 8588557-0 (Version None)
Quarter: 2012Q3

REPORT INFORMATION
  Report Type: 
  Country: None (occurrence: None)
  Receive Date: 20120813
  Receipt Date: 20120806
  Transmission Date: 20120928
  Serious: Yes (Other)
  Sender: FDA-Public Use
  Company Number: JP-JNJFOC-20120804628

PATIENT
  Age: 72 Year
  Sex: Male

DRUGS (2)
  1. RIUP 1% [Suspect]
     Indication: ANDROGENETIC ALOPECIA
     Route: 061
     Dates: end: 20120601
  2. RIUP 1% [Suspect]
     Route: 061

REACTIONS (3)
  - BASAL CELL CARCINOMA [None]
  - APPLICATION SITE ERYTHEMA [None]
  - APPLICATION SITE SWELLING [None]
